FAERS Safety Report 8557976-0 (Version None)
Quarter: 2012Q3

REPORT INFORMATION
  Report Type: 
  Country: None (occurrence: None)
  Receive Date: 20120801
  Receipt Date: 20120726
  Transmission Date: 20120928
  Serious: Yes (Other)
  Sender: FDA-Public Use
  Company Number: US-TEVA-348763USA

PATIENT
  Sex: Female
  Weight: 69.916 kg

DRUGS (1)
  1. PLAN B ONE-STEP [Suspect]
     Indication: POST COITAL CONTRACEPTION
     Dosage: 1.5 MILLIGRAM;
     Route: 048
     Dates: start: 20120625, end: 20120625

REACTIONS (9)
  - HUMAN CHORIONIC GONADOTROPIN DECREASED [None]
  - ABDOMINAL PAIN LOWER [None]
  - PREGNANCY AFTER POST COITAL CONTRACEPTION [None]
  - VAGINAL HAEMORRHAGE [None]
  - MENSTRUATION DELAYED [None]
  - PELVIC PAIN [None]
  - ABORTION SPONTANEOUS [None]
  - DRUG INEFFECTIVE [None]
  - BREAST PAIN [None]
